FAERS Safety Report 4732971-8 (Version None)
Quarter: 2005Q3

REPORT INFORMATION
  Report Type: 
  Country: None (occurrence: None)
  Receive Date: 20050802
  Receipt Date: 20050802
  Transmission Date: 20060218
  Serious: Yes (Life-Threatening, Hospitalization)
  Sender: FDA-Public Use
  Company Number: None

PATIENT
  Age: 31 Year
  Sex: Female
  Weight: 188 kg

DRUGS (8)
  1. LISINOPRIL [Suspect]
     Indication: HYPERTENSION
  2. ATENOLOL [Concomitant]
  3. HYDRODIURIL [Concomitant]
  4. AMARYL [Concomitant]
  5. SYNTHROID [Concomitant]
  6. ORTHO EVRA [Concomitant]
  7. REGLAN [Concomitant]
  8. . [Concomitant]

REACTIONS (1)
  - SWOLLEN TONGUE [None]
